FAERS Safety Report 13499286 (Version 1)
Quarter: 2017Q2

REPORT INFORMATION
  Report Type: Spontaneous
  Country: US (occurrence: US)
  Receive Date: 20170501
  Receipt Date: 20170501
  Transmission Date: 20170830
  Serious: Yes (Other)
  Sender: FDA-Public Use
  Company Number: US-LPDUSPRD-20170464

PATIENT
  Age: 93 Year
  Sex: Male

DRUGS (1)
  1. EPINEPHRINE INJECTION, USP (1071-25) [Suspect]
     Active Substance: EPINEPHRINE
     Dosage: 15 MCG
     Route: 024

REACTIONS (1)
  - Seizure [Unknown]
